FAERS Safety Report 6143193-0 (Version None)
Quarter: 2009Q2

REPORT INFORMATION
  Report Type: 
  Country: None (occurrence: None)
  Receive Date: 20090403
  Receipt Date: 20040205
  Transmission Date: 20091009
  Serious: Yes (Death)
  Sender: FDA-Public Use
  Company Number: IL-ROCHE-615324

PATIENT
  Sex: Female

DRUGS (21)
  1. MYCOPHENOLATE MOFETIL [Suspect]
     Route: 048
     Dates: start: 20031101
  2. TACROLIMUS [Suspect]
     Route: 048
     Dates: start: 20031114, end: 20031118
  3. TACROLIMUS [Suspect]
     Route: 048
     Dates: start: 20031119
  4. CYCLOSPORINE [Suspect]
     Dosage: DRUG NAME REPORTED AS: CYCLOSPORIN
     Route: 048
     Dates: start: 20031102, end: 20031109
  5. CYCLOSPORINE [Suspect]
     Dosage: DRUG NAME REPORTED AS: CYCLOSPORIN
     Route: 048
     Dates: start: 20031110, end: 20031113
  6. CYCLOSPORINE [Suspect]
     Dosage: DRUG NAME REPORTED AS: CYCLOSPORIN
     Route: 048
     Dates: start: 20031114, end: 20031115
  7. PREDNISONE [Suspect]
     Route: 048
     Dates: start: 20031102
  8. SOLU-MEDROL [Suspect]
     Route: 042
     Dates: start: 20031101, end: 20031102
  9. SOLU-MEDROL [Suspect]
     Route: 042
     Dates: start: 20031107, end: 20031108
  10. SOLU-MEDROL [Suspect]
     Route: 042
     Dates: start: 20031109, end: 20031112
  11. ATGAM [Concomitant]
     Route: 042
     Dates: start: 20031114, end: 20031120
  12. COTRIMOXAZOLE [Concomitant]
     Route: 048
     Dates: start: 20031101
  13. INSULIN [Concomitant]
     Dosage: ROUTE: INTRAVENOUS. FREQUENCY: PN (AS NECESSARY)
     Route: 050
     Dates: end: 20031031
  14. INSULIN [Concomitant]
     Dosage: ROUTE: SUBCUTANEOUS
     Route: 050
     Dates: start: 20031102, end: 20031103
  15. INSULIN [Concomitant]
     Dosage: ROUTE: INTRAVENOUS.
     Route: 050
     Dates: start: 20031104, end: 20031109
  16. INSULIN [Concomitant]
     Dosage: ROUTE: INTRAVENOUS.
     Route: 050
     Dates: start: 20031110
  17. LEVOFLOXACIN [Concomitant]
     Route: 048
     Dates: start: 20031112, end: 20031123
  18. AMPICILLIN [Concomitant]
     Route: 042
     Dates: start: 20031106, end: 20031111
  19. CEFTRIAXONE [Concomitant]
     Route: 042
     Dates: start: 20031106, end: 20031111
  20. HEPARIN [Concomitant]
     Route: 058
     Dates: start: 20031101
  21. OFLOXACIN [Concomitant]
     Route: 048
     Dates: start: 20031107, end: 20031111

REACTIONS (1)
  - DEATH [None]
